FAERS Safety Report 21691193 (Version 1)
Quarter: 2022Q4

REPORT INFORMATION
  Report Type: Report from Study
  Country: US (occurrence: US)
  Receive Date: 20221207
  Receipt Date: 20221207
  Transmission Date: 20230113
  Serious: No
  Sender: FDA-Public Use
  Company Number: US-ABBVIE-4189962

PATIENT
  Sex: Female

DRUGS (1)
  1. RINVOQ [Suspect]
     Active Substance: UPADACITINIB
     Indication: Rheumatoid arthritis
     Route: 048
     Dates: start: 20221101

REACTIONS (8)
  - Peripheral swelling [Unknown]
  - Grip strength decreased [Unknown]
  - Joint swelling [Unknown]
  - Joint range of motion decreased [Unknown]
  - Feeling hot [Unknown]
  - Loss of personal independence in daily activities [Unknown]
  - Erythema [Unknown]
  - Arthralgia [Unknown]
